FAERS Safety Report 24272758 (Version 1)
Quarter: 2024Q3

REPORT INFORMATION
  Report Type: Report from Study
  Country: US (occurrence: None)
  Receive Date: 20240902
  Receipt Date: 20240902
  Transmission Date: 20241016
  Serious: Yes (Other)
  Sender: ASTRAZENECA
  Company Number: 2024A197159

PATIENT
  Sex: Female
  Weight: 65.8 kg

DRUGS (1)
  1. KOSELUGO [Suspect]
     Active Substance: SELUMETINIB
     Indication: Nervous system neoplasm benign
     Route: 048
     Dates: start: 20200721

REACTIONS (1)
  - Hydronephrosis [Not Recovered/Not Resolved]
